FAERS Safety Report 4425545-X (Version None)
Quarter: 2004Q3

REPORT INFORMATION
  Report Type: 
  Country: None (occurrence: None)
  Receive Date: 20040810
  Receipt Date: 20040713
  Transmission Date: 20050211
  Serious: Yes (Death, Hospitalization)
  Sender: FDA-Public Use
  Company Number: 2004-BP-05627BP

PATIENT
  Age: 83 Year
  Sex: Female
  Weight: 62.1 kg

DRUGS (4)
  1. MOBIC [Suspect]
     Indication: RHEUMATOID ARTHRITIS
     Dosage: SEE TEXT (7.5 MG, 1 PRN), PO
     Route: 048
     Dates: start: 20020201, end: 20040706
  2. ACETYLSALICYLIC ACID SRT [Concomitant]
  3. PREDNISONE TAB [Concomitant]
  4. METHOTREXATE [Concomitant]

REACTIONS (1)
  - DUODENAL ULCER HAEMORRHAGE [None]
